FAERS Safety Report 9033212 (Version 1)
Quarter: 2013Q1

REPORT INFORMATION
  Report Type: Report from Study
  Country: SG (occurrence: SG)
  Receive Date: 20130128
  Receipt Date: 20130128
  Transmission Date: 20140127
  Serious: Yes (Hospitalization)
  Sender: FDA-Public Use
  Company Number: SG-BAYER-2013-008598

PATIENT
  Sex: 0

DRUGS (4)
  1. ASPIRIN [Suspect]
     Indication: NEOPLASM MALIGNANT
  2. PREDNISOLONE [Interacting]
     Indication: NEOPLASM MALIGNANT
  3. AMOXICILLIN\CLAVULANIC ACID [Suspect]
  4. OMEPRAZOLE [Concomitant]

REACTIONS (5)
  - Diarrhoea [None]
  - Dysphagia [None]
  - Gastrooesophageal reflux disease [None]
  - Gastrointestinal toxicity [None]
  - Drug interaction [None]
